FAERS Safety Report 7088554-0 (Version None)
Quarter: 2010Q4

REPORT INFORMATION
  Report Type: 
  Country: None (occurrence: None)
  Receive Date: 20101028
  Receipt Date: 20101015
  Transmission Date: 20110411
  Serious: Yes (Other)
  Sender: FDA-Public Use
  Company Number: US-1183769

PATIENT
  Age: 56 Year
  Sex: Female

DRUGS (1)
  1. CIPRODEX [Suspect]
     Indication: CORNEAL ABRASION
     Dosage: (Q2H X2D; Q4H NEXT 5 D OPHTHALMIC)
     Route: 047

REACTIONS (9)
  - CORNEAL INFILTRATES [None]
  - CORNEAL OPACITY [None]
  - DRUG PRESCRIBING ERROR [None]
  - MEDICATION ERROR [None]
  - MIGRAINE [None]
  - PHOTOPSIA [None]
  - VISUAL FIELD DEFECT [None]
  - VISUAL IMPAIRMENT [None]
  - WRONG DRUG ADMINISTERED [None]
